FAERS Safety Report 11369794 (Version 1)
Quarter: 2015Q3

REPORT INFORMATION
  Report Type: Spontaneous
  Country: US (occurrence: US)
  Receive Date: 20150812
  Receipt Date: 20150812
  Transmission Date: 20151125
  Serious: Yes (Other)
  Sender: FDA-Public Use
  Company Number: US-JNJFOC-20150712690

PATIENT
  Age: 65 Year
  Sex: Female
  Weight: 83.46 kg

DRUGS (2)
  1. INVOKANA [Suspect]
     Active Substance: CANAGLIFLOZIN
     Indication: PRODUCT USED FOR UNKNOWN INDICATION
     Route: 048
     Dates: start: 2013, end: 201506
  2. INSULIN [Concomitant]
     Active Substance: INSULIN NOS

REACTIONS (6)
  - Weight decreased [Not Recovered/Not Resolved]
  - Fungal infection [Unknown]
  - Fall [Unknown]
  - Rash [Unknown]
  - Urinary tract infection [Unknown]
  - Glucose urine present [Unknown]

NARRATIVE: CASE EVENT DATE: 2015
